FAERS Safety Report 20513525 (Version 1)
Quarter: 2022Q1

REPORT INFORMATION
  Report Type: Spontaneous
  Country: US (occurrence: US)
  Receive Date: 20220224
  Receipt Date: 20220224
  Transmission Date: 20220424
  Serious: No
  Sender: FDA-Public Use
  Company Number: US-AMNEAL PHARMACEUTICALS-2021-AMRX-04497

PATIENT
  Sex: Male

DRUGS (8)
  1. RYTARY [Suspect]
     Active Substance: CARBIDOPA\LEVODOPA
     Indication: Parkinson^s disease
     Dosage: 61.25/245MG, 2 CAPSULES, QID (8:00AM, 2:00PM, 8:00PM, 2:00AM)
     Route: 048
     Dates: start: 202110, end: 20211029
  2. RYTARY [Suspect]
     Active Substance: CARBIDOPA\LEVODOPA
     Dosage: 48.75/195MG, 3 CAPSULES, 4X/DAY (8:00AM, 2:00PM, 8:00PM, 2:00AM)
     Route: 048
     Dates: start: 20211103
  3. INBRIJA [Concomitant]
     Active Substance: LEVODOPA
     Indication: Product used for unknown indication
     Dosage: 4X/DAY (UPTO 4 TIMES DAILY)
     Route: 065
  4. VITAMINS NOS [Concomitant]
     Active Substance: VITAMINS
     Indication: Product used for unknown indication
     Dosage: UNK
     Route: 065
  5. FISH OIL [Concomitant]
     Active Substance: FISH OIL
     Indication: Product used for unknown indication
     Dosage: DISCONTINUED
     Route: 065
  6. METHOCARBAMOL [Interacting]
     Active Substance: METHOCARBAMOL
     Indication: Back pain
     Dosage: 500 MILLIGRAM, 1X/DAY
     Route: 065
  7. METHOCARBAMOL [Interacting]
     Active Substance: METHOCARBAMOL
     Indication: Neck pain
  8. ALPRAZOLAM [Concomitant]
     Active Substance: ALPRAZOLAM
     Indication: Anxiety
     Dosage: HALF TAB TWICE DAILY AND 1 TAB AT BEDTIME
     Route: 065

REACTIONS (4)
  - Drug effect less than expected [Unknown]
  - Sleep disorder [Unknown]
  - Product dose omission issue [Unknown]
  - Therapy cessation [Unknown]

NARRATIVE: CASE EVENT DATE: 20210101
